FAERS Safety Report 10242586 (Version 1)
Quarter: 2014Q2

REPORT INFORMATION
  Report Type: Spontaneous
  Country: GB (occurrence: GB)
  Receive Date: 20140617
  Receipt Date: 20140617
  Transmission Date: 20141212
  Serious: Yes (Other)
  Sender: FDA-Public Use
  Company Number: PHHY2014GB071710

PATIENT
  Age: 43 Year
  Sex: Male
  Weight: 90 kg

DRUGS (2)
  1. CETIRIZINE [Suspect]
     Indication: SEASONAL ALLERGY
     Dosage: 1 DF, QD
     Route: 048
     Dates: start: 20080401, end: 20110501
  2. SALBUTAMOL [Concomitant]
     Indication: ASTHMA

REACTIONS (3)
  - Anxiety [Recovered/Resolved with Sequelae]
  - Heart rate increased [Recovered/Resolved]
  - Malaise [Recovered/Resolved]
